FAERS Safety Report 10583426 (Version 1)
Quarter: 2014Q4

REPORT INFORMATION
  Report Type: Spontaneous
  Country: NL (occurrence: NL)
  Receive Date: 20141114
  Receipt Date: 20141114
  Transmission Date: 20150529
  Serious: Yes (Other)
  Sender: FDA-Public Use
  Company Number: NL-JNJFOC-20141102777

PATIENT

DRUGS (1)
  1. ABCIXIMAB [Suspect]
     Active Substance: ABCIXIMAB
     Indication: PERCUTANEOUS CORONARY INTERVENTION
     Route: 042

REACTIONS (3)
  - Haemorrhage [Unknown]
  - Cerebrovascular disorder [Unknown]
  - Cardiovascular disorder [Unknown]
